FAERS Safety Report 13666536 (Version 1)
Quarter: 2017Q2

REPORT INFORMATION
  Report Type: Spontaneous
  Country: US (occurrence: US)
  Receive Date: 20170619
  Receipt Date: 20170619
  Transmission Date: 20170830
  Serious: No
  Sender: FDA-Public Use
  Company Number: US-ROCHE-1143179

PATIENT
  Age: 46 Year
  Sex: Female
  Weight: 63.56 kg

DRUGS (2)
  1. XELODA [Suspect]
     Active Substance: CAPECITABINE
     Indication: GASTRIC CANCER
     Route: 048
     Dates: start: 201206, end: 20121005
  2. XELODA [Suspect]
     Active Substance: CAPECITABINE
     Route: 048

REACTIONS (5)
  - Dysphagia [Not Recovered/Not Resolved]
  - Diarrhoea [Recovered/Resolved]
  - Dysphagia [Unknown]
  - Vomiting [Recovered/Resolved]
  - Ear discomfort [Not Recovered/Not Resolved]

NARRATIVE: CASE EVENT DATE: 201206
